FAERS Safety Report 12408682 (Version 1)
Quarter: 2016Q2

REPORT INFORMATION
  Report Type: Spontaneous
  Country: FR (occurrence: FR)
  Receive Date: 20160526
  Receipt Date: 20160526
  Transmission Date: 20160815
  Serious: Yes (Hospitalization)
  Sender: FDA-Public Use
  Company Number: FR-PERRIGO-16FR016446

PATIENT

DRUGS (1)
  1. ACETAMINOPHEN. [Suspect]
     Active Substance: ACETAMINOPHEN
     Indication: SUICIDE ATTEMPT
     Dosage: }300 MG/KG
     Route: 048

REACTIONS (3)
  - Overdose [Recovered/Resolved]
  - Liver disorder [Recovering/Resolving]
  - Acute kidney injury [Recovering/Resolving]
